FAERS Safety Report 21035509 (Version 1)
Quarter: 2022Q3

REPORT INFORMATION
  Report Type: Spontaneous
  Country: CA (occurrence: CA)
  Receive Date: 20220701
  Receipt Date: 20220701
  Transmission Date: 20221027
  Serious: Yes (Hospitalization)
  Sender: FDA-Public Use
  Company Number: CA-PFIZER INC-202200912897

PATIENT
  Age: 73 Year
  Sex: Female

DRUGS (1)
  1. DOCETAXEL [Suspect]
     Active Substance: DOCETAXEL
     Dosage: 117 MG

REACTIONS (3)
  - Pruritus [Recovered/Resolved]
  - Rash macular [Recovered/Resolved]
  - Throat irritation [Recovered/Resolved]
